FAERS Safety Report 8948052 (Version 2)
Quarter: 2014Q2

REPORT INFORMATION
  Report Type: Spontaneous
  Country: US (occurrence: US)
  Receive Date: 20121204
  Receipt Date: 20140401
  Transmission Date: 20141212
  Serious: No
  Sender: FDA-Public Use
  Company Number: US-ASTRAZENECA-2012SE13699

PATIENT
  Age: 76 Year
  Sex: Female

DRUGS (5)
  1. NEXIUM [Suspect]
     Route: 048
  2. CRESTOR [Suspect]
     Route: 048
  3. LEVOTHYROXINE [Concomitant]
  4. PANTOPRAZOLE [Concomitant]
  5. COQ10 [Concomitant]

REACTIONS (6)
  - Gastrooesophageal reflux disease [Unknown]
  - Bronchiectasis [Unknown]
  - Pneumonia [Unknown]
  - Aspiration [Unknown]
  - Intentional product misuse [Unknown]
  - Drug dose omission [Unknown]
